FAERS Safety Report 8789666 (Version 1)
Quarter: 2012Q4

REPORT INFORMATION
  Report Type: Spontaneous
  Country: US (occurrence: None)
  Receive Date: 20120911
  Receipt Date: 20120911
  Transmission Date: 20130627
  Serious: Yes (Hospitalization, Other)
  Sender: FDA-Public Use
  Company Number: None

PATIENT
  Age: 39 Year
  Sex: Female

DRUGS (1)
  1. FERRIC SUBSULFATE [Suspect]
     Indication: HAEMORRHAGE

REACTIONS (5)
  - Burning sensation [None]
  - Muscle spasms [None]
  - Loss of consciousness [None]
  - Vulval disorder [None]
  - Product physical issue [None]
